FAERS Safety Report 26076202 (Version 1)
Quarter: 2025Q4

REPORT INFORMATION
  Report Type: Spontaneous
  Country: US (occurrence: US)
  Receive Date: 20251121
  Receipt Date: 20251121
  Transmission Date: 20260118
  Serious: No
  Sender: ROCHE
  Company Number: US-ROCHE-10000436586

PATIENT
  Sex: Female
  Weight: 58.96 kg

DRUGS (8)
  1. XOLAIR [Suspect]
     Active Substance: OMALIZUMAB
     Indication: Asthma
     Route: 058
     Dates: start: 202509
  2. XOLAIR [Suspect]
     Active Substance: OMALIZUMAB
     Indication: Urticaria
     Route: 058
     Dates: start: 202505, end: 202509
  3. ADVAIR HFA [Concomitant]
     Active Substance: FLUTICASONE PROPIONATE\SALMETEROL XINAFOATE
     Indication: Asthma
     Dosage: AS NEEDED
     Route: 055
  4. ALBUTEROL [Concomitant]
     Active Substance: ALBUTEROL
     Indication: Asthma
     Dosage: AS NEEDED
     Route: 055
  5. ATROVENT [Concomitant]
     Active Substance: IPRATROPIUM BROMIDE
     Indication: Hypersensitivity
     Dosage: ROTATES EVERY OTHER DAY WITH FLUTICASONE
     Route: 045
  6. FLUTICASONE [Concomitant]
     Active Substance: FLUTICASONE
     Indication: Hypersensitivity
     Dosage: ROTATES EVERY OTHER DAY WITH ATROVENT
     Route: 045
  7. BIOTE [Concomitant]
     Indication: Hormone therapy
     Dosage: RECEIVES EVERY 3.5 TO 4 MONTHS
  8. PROGESTERONE [Concomitant]
     Active Substance: PROGESTERONE
     Indication: Hormone therapy
     Route: 048

REACTIONS (3)
  - Device issue [Unknown]
  - Off label use [Unknown]
  - No adverse event [Unknown]
